FAERS Safety Report 7760728-2 (Version None)
Quarter: 2011Q3

REPORT INFORMATION
  Report Type: 
  Country: None (occurrence: None)
  Receive Date: 20110919
  Receipt Date: 20110829
  Transmission Date: 20111222
  Serious: Yes (Other)
  Sender: FDA-Public Use
  Company Number: US-ASTRAZENECA-2011SE46006

PATIENT
  Age: 60 Year
  Sex: Female

DRUGS (10)
  1. OXYBUTYNINE [Concomitant]
     Dosage: 1-3 PER DAY
  2. HYOSICAMINE [Concomitant]
     Dosage: AS NEEDED
  3. NEXIUM [Suspect]
     Route: 048
  4. ALBUTEROL [Concomitant]
     Dosage: 2 PUFFS AS NEEDED
  5. OMEPRAZOLE [Suspect]
     Indication: DYSPEPSIA
     Route: 048
  6. PRAVASTATIN [Concomitant]
  7. METAMUCIL-2 [Concomitant]
     Dosage: 1 GLASS PER DAY
  8. CALMOSEPTINE [Concomitant]
     Dosage: AS NEEDED
  9. CORTISOL [Concomitant]
     Dosage: AS NEEDED
  10. MICONIZOLE [Concomitant]
     Dosage: AS NEEDED

REACTIONS (9)
  - DRUG EFFECT DECREASED [None]
  - DRUG DOSE OMISSION [None]
  - BREAST ABSCESS [None]
  - BARRETT'S OESOPHAGUS [None]
  - BREAST INFECTION [None]
  - SALIVARY GLAND NEOPLASM [None]
  - HYPOKINESIA [None]
  - GASTROINTESTINAL DISORDER [None]
  - NEOPLASM [None]
